FAERS Safety Report 4586252-6 (Version None)
Quarter: 2005Q1

REPORT INFORMATION
  Report Type: 
  Country: None (occurrence: None)
  Receive Date: 20050125
  Receipt Date: 20041122
  Transmission Date: 20050727
  Serious: No
  Sender: FDA-Public Use
  Company Number: US_0411108248

PATIENT
  Age: 74 Year
  Sex: Female

DRUGS (11)
  1. FORTEO [Suspect]
     Indication: OSTEOPOROSIS
     Dates: start: 20041005
  2. IMITREX [Concomitant]
  3. VITAMIN D [Concomitant]
  4. DIPHENHYDRAMINE HCL [Concomitant]
  5. OXYCONTIN [Concomitant]
  6. OXYCODONE HCL [Concomitant]
  7. VERAPAMIL [Concomitant]
  8. DIAZEPAM [Concomitant]
  9. PAROXETINE [Concomitant]
  10. PREVACID [Concomitant]
  11. INFLUENZA VACCINE [Concomitant]

REACTIONS (6)
  - DIARRHOEA [None]
  - DIZZINESS [None]
  - MYALGIA [None]
  - NAUSEA [None]
  - OVERDOSE [None]
  - VOMITING [None]
